FAERS Safety Report 18189710 (Version 8)
Quarter: 2022Q3

REPORT INFORMATION
  Report Type: Spontaneous
  Country: CN (occurrence: CN)
  Receive Date: 20200824
  Receipt Date: 20220721
  Transmission Date: 20221027
  Serious: Yes (Other)
  Sender: FDA-Public Use
  Company Number: None

PATIENT
  Age: 57 Year
  Sex: Male

DRUGS (9)
  1. DIOVAN [Suspect]
     Active Substance: VALSARTAN
     Indication: Product used for unknown indication
     Dosage: 80 MG, QD (1 CAPSULE) (10 YEAR PRIOR)
     Route: 048
     Dates: start: 20110720, end: 202009
  2. DIOVAN [Suspect]
     Active Substance: VALSARTAN
     Dosage: UNK
     Route: 048
  3. DIOVAN [Suspect]
     Active Substance: VALSARTAN
     Dosage: UNK  (PILL IN THE MORNING AND EVENING EVERY DAY)
     Route: 065
  4. DIOVAN [Suspect]
     Active Substance: VALSARTAN
     Dosage: 1 DOSAGE FORM (1 PILL)
     Route: 048
     Dates: start: 20220505
  5. HYDROCHLOROTHIAZIDE\VALSARTAN [Suspect]
     Active Substance: HYDROCHLOROTHIAZIDE\VALSARTAN
     Indication: Product used for unknown indication
     Dosage: UNK
     Route: 065
  6. HYDROCHLOROTHIAZIDE\VALSARTAN [Suspect]
     Active Substance: HYDROCHLOROTHIAZIDE\VALSARTAN
     Dosage: UNK
     Route: 048
     Dates: start: 20220504
  7. PRIL [Concomitant]
     Indication: Product used for unknown indication
     Dosage: UNK, BID (ONE TABLET IN THE MORNING AND EVENING)
     Route: 048
  8. NIFEDIPINE [Concomitant]
     Active Substance: NIFEDIPINE
     Indication: Product used for unknown indication
     Dosage: CONTROLLED RELEASE TABLETS
     Route: 048
  9. ADALAT [Concomitant]
     Active Substance: NIFEDIPINE
     Indication: Product used for unknown indication
     Dosage: 1 DOSAGE FORM (1 PILL)
     Route: 048
     Dates: start: 20220504

REACTIONS (15)
  - Haematuria [Unknown]
  - Gouty tophus [Unknown]
  - Pollakiuria [Unknown]
  - Urge incontinence [Unknown]
  - Micturition urgency [Unknown]
  - Oliguria [Unknown]
  - Blood uric acid increased [Recovering/Resolving]
  - Angiopathy [Unknown]
  - Drug resistance [Unknown]
  - Malaise [Not Recovered/Not Resolved]
  - Nonspecific reaction [Unknown]
  - Ventricular dysfunction [Unknown]
  - Heart valve incompetence [Unknown]
  - Blood potassium decreased [Unknown]
  - Drug ineffective [Recovering/Resolving]
